FAERS Safety Report 8883476 (Version 2)
Quarter: 2013Q1

REPORT INFORMATION
  Report Type: Spontaneous
  Country: CA (occurrence: CA)
  Receive Date: 20121102
  Receipt Date: 20130212
  Transmission Date: 20140127
  Serious: Yes (Disabling)
  Sender: FDA-Public Use
  Company Number: CA-SANOFI-AVENTIS-2012SA078653

PATIENT
  Age: 48 Year
  Sex: Female

DRUGS (5)
  1. PLAQUENIL [Suspect]
     Indication: RHEUMATOID ARTHRITIS
     Route: 048
     Dates: start: 2006, end: 2009
  2. PLAQUENIL [Suspect]
     Indication: RHEUMATOID ARTHRITIS
     Route: 048
     Dates: start: 2009, end: 2009
  3. PLAQUENIL [Suspect]
     Indication: RHEUMATOID ARTHRITIS
     Dosage: TAKEN TO: 3 MONTHS AGO
     Route: 048
     Dates: start: 2009, end: 2012
  4. PREDNISONE [Concomitant]
     Dosage: TAKEN TO: 2006 (1 MONTH AGO)
     Dates: start: 2006, end: 2006
  5. DICLOFENAC [Concomitant]
     Dosage: TAKEN TO: NOT TAKEN FOR MANY YEARS

REACTIONS (7)
  - Myalgia [Recovered/Resolved]
  - Vision blurred [Recovered/Resolved]
  - Muscular weakness [Recovered/Resolved]
  - Tremor [Recovered/Resolved]
  - Blood iron abnormal [Recovered/Resolved]
  - Cardiac function test abnormal [Unknown]
  - Rash [Recovered/Resolved]
